FAERS Safety Report 12039627 (Version 1)
Quarter: 2016Q1

REPORT INFORMATION
  Report Type: Spontaneous
  Country: US (occurrence: None)
  Receive Date: 20160205
  Receipt Date: 20160205
  Transmission Date: 20160526
  Serious: No
  Sender: FDA-Public Use
  Company Number: None

PATIENT
  Age: 79 Year
  Sex: Female
  Weight: 97 kg

DRUGS (24)
  1. BROVANA [Concomitant]
     Active Substance: ARFORMOTEROL TARTRATE
  2. BISOPROLOL/HCTZ [Concomitant]
     Active Substance: BISOPROLOL FUMARATE\HYDROCHLOROTHIAZIDE
  3. BUDESONIDE. [Concomitant]
     Active Substance: BUDESONIDE
  4. MUCINEX ER [Concomitant]
  5. SERTRALINE [Concomitant]
     Active Substance: SERTRALINE HYDROCHLORIDE
  6. GUAIFENESIN. [Concomitant]
     Active Substance: GUAIFENESIN
  7. CLONIDINE. [Concomitant]
     Active Substance: CLONIDINE
  8. L-LYSINE [Concomitant]
     Active Substance: LYSINE
  9. ATORVASTATIN [Concomitant]
     Active Substance: ATORVASTATIN
  10. LOSARTAN. [Concomitant]
     Active Substance: LOSARTAN
  11. SOLU-MEDROL [Concomitant]
     Active Substance: METHYLPREDNISOLONE SODIUM SUCCINATE
  12. LEVOFLOXACIN 750 MG [Suspect]
     Active Substance: LEVOFLOXACIN
     Indication: CHRONIC OBSTRUCTIVE PULMONARY DISEASE
     Route: 042
     Dates: start: 20160128, end: 20160202
  13. ACETAMINOPHEN AND DIPHENHYDRAMINE HYDROCHLORIDE [Concomitant]
     Active Substance: ACETAMINOPHEN\DIPHENHYDRAMINE HYDROCHLORIDE
  14. ALBUTEROL/IPRATROPIUM [Concomitant]
     Active Substance: ALBUTEROL\IPRATROPIUM
  15. LOVENOX [Concomitant]
     Active Substance: ENOXAPARIN SODIUM
  16. FISH OIL [Concomitant]
     Active Substance: FISH OIL
  17. SENNA/DOCUSATE [Concomitant]
  18. ASPIRIN. [Concomitant]
     Active Substance: ASPIRIN
  19. CALCIUM/MAGNEZIUM/ZINC [Concomitant]
  20. TRAMADOL. [Concomitant]
     Active Substance: TRAMADOL
  21. ACETAMINOPHEN. [Concomitant]
     Active Substance: ACETAMINOPHEN
  22. MYLANTA [Concomitant]
     Active Substance: ALUMINUM HYDROXIDE\DIMETHICONE\MAGNESIUM HYDROXIDE
  23. GLUCOSAMINE/CHONDROITIN [Concomitant]
  24. TIZANIDINE. [Concomitant]
     Active Substance: TIZANIDINE

REACTIONS (2)
  - Hallucination, visual [None]
  - Hypoxia [None]

NARRATIVE: CASE EVENT DATE: 20160128
